FAERS Safety Report 26083451 (Version 1)
Quarter: 2025Q4

REPORT INFORMATION
  Report Type: Spontaneous
  Country: EU (occurrence: EU)
  Receive Date: 20251124
  Receipt Date: 20251124
  Transmission Date: 20260118
  Serious: Yes (Hospitalization)
  Sender: FRESENIUS KABI
  Company Number: None

PATIENT
  Age: 81 Year
  Sex: Female
  Weight: 93 kg

DRUGS (3)
  1. LIDOCAINE [Suspect]
     Active Substance: LIDOCAINE
     Indication: Cataract operation
     Dates: start: 20250821
  2. MOXONIDINE TABLET 0.2MG / Brand name not specified [Concomitant]
     Indication: Product used for unknown indication
     Dosage: FOA: TABLET
     Route: 048
  3. TELMISARTAN TABLET 20MG / MICARDIS TABLET 20MG [Concomitant]
     Indication: Product used for unknown indication
     Dosage: FOA: TABLET
     Route: 048

REACTIONS (4)
  - Palpitations [Recovered/Resolved]
  - Blood pressure fluctuation [Recovered/Resolved]
  - Dyspnoea [Recovered/Resolved]
  - Vomiting [Recovered/Resolved]
